FAERS Safety Report 22193268 (Version 1)
Quarter: 2023Q2

REPORT INFORMATION
  Report Type: Report from Study
  Country: US (occurrence: US)
  Receive Date: 20230410
  Receipt Date: 20230410
  Transmission Date: 20230722
  Serious: No
  Sender: FDA-Public Use
  Company Number: US-INCYTE CORPORATION-2023IN002182

PATIENT

DRUGS (3)
  1. JAKAFI [Suspect]
     Active Substance: RUXOLITINIB
     Indication: Polycythaemia vera
     Dosage: 10 MILLIGRAM, BID
     Route: 048
     Dates: start: 20151027, end: 20230304
  2. JAKAFI [Suspect]
     Active Substance: RUXOLITINIB
     Dosage: DECREASING MY DOSE TO ONCE A DAY
     Route: 048
  3. JAKAFI [Suspect]
     Active Substance: RUXOLITINIB
     Dosage: 25 MILLIGRAM, BID
     Route: 048

REACTIONS (4)
  - Splenomegaly [Unknown]
  - Full blood count abnormal [Unknown]
  - Intentional product use issue [Unknown]
  - Product availability issue [Unknown]
